FAERS Safety Report 10034232 (Version 1)
Quarter: 2014Q1

REPORT INFORMATION
  Report Type: Spontaneous
  Country: US (occurrence: None)
  Receive Date: 20140321
  Receipt Date: 20140321
  Transmission Date: 20141002
  Serious: Yes (Other)
  Sender: FDA-Public Use
  Company Number: SYM-2014-18516

PATIENT
  Age: 46 Year
  Sex: Female

DRUGS (1)
  1. OBAGI NUDERM SYSTERM [Suspect]
     Indication: SKIN DISORDER
     Dosage: AS DIRECTED
     Dates: start: 20140226, end: 20140226

REACTIONS (3)
  - Anaphylactic reaction [None]
  - Eye swelling [None]
  - Throat tightness [None]
